FAERS Safety Report 8652151 (Version 2)
Quarter: 2013Q3

REPORT INFORMATION
  Report Type: Spontaneous
  Country: US (occurrence: US)
  Receive Date: 20120706
  Receipt Date: 20130712
  Transmission Date: 20140515
  Serious: No
  Sender: FDA-Public Use
  Company Number: US-GLAXOSMITHKLINE-A0966396A

PATIENT
  Age: 56 Year
  Sex: Male
  Weight: 72.7 kg

DRUGS (14)
  1. FLOVENT [Suspect]
     Indication: PRODUCT USED FOR UNKNOWN INDICATION
     Route: 055
  2. ALBUTEROL\IPRATROPIUM [Suspect]
  3. DOXYCYCLINE HYCLATE [Suspect]
     Indication: PRODUCT USED FOR UNKNOWN INDICATION
     Dosage: 100MG TWICE PER DAY
  4. ACETAMINOPHEN [Concomitant]
  5. AMOXICILLIN [Concomitant]
  6. CALCIUM CARBONATE [Concomitant]
  7. CYCLOBENZAPRINE [Concomitant]
  8. MULTIVITAMIN [Concomitant]
  9. DOCUSATE SODIUM [Concomitant]
  10. COMBIVENT [Concomitant]
  11. DUONEB [Concomitant]
  12. METHYLCELLULOSE [Concomitant]
  13. LAXATIVE [Concomitant]
  14. THEOPHYLLINE [Concomitant]

REACTIONS (1)
  - Tooth discolouration [Not Recovered/Not Resolved]
